FAERS Safety Report 13816796 (Version 1)
Quarter: 2017Q3

REPORT INFORMATION
  Report Type: Spontaneous
  Country: US (occurrence: US)
  Receive Date: 20170731
  Receipt Date: 20170731
  Transmission Date: 20171127
  Serious: No
  Sender: FDA-Public Use
  Company Number: US-JNJFOC-20170524904

PATIENT
  Age: 33 Year
  Sex: Male
  Weight: 99.79 kg

DRUGS (2)
  1. ZYRTEC [Suspect]
     Active Substance: CETIRIZINE HYDROCHLORIDE
     Indication: MULTIPLE ALLERGIES
     Dosage: 2 10MG TABLETS
     Route: 048
     Dates: start: 20170517
  2. ZYRTEC [Suspect]
     Active Substance: CETIRIZINE HYDROCHLORIDE
     Indication: MULTIPLE ALLERGIES
     Dosage: ON DAY3
     Route: 048
     Dates: start: 20170519, end: 20170520

REACTIONS (3)
  - Incorrect dose administered [Recovered/Resolved]
  - Drug ineffective [Unknown]
  - Dyspepsia [Recovered/Resolved]

NARRATIVE: CASE EVENT DATE: 20170517
